FAERS Safety Report 5662115-X (Version None)
Quarter: 2008Q1

REPORT INFORMATION
  Report Type: 
  Country: None (occurrence: None)
  Receive Date: 20080312
  Receipt Date: 20080307
  Transmission Date: 20080703
  Serious: Yes (Hospitalization)
  Sender: FDA-Public Use
  Company Number: JP-BOEHRINGER INGELHEIM GMBH, GERMANY-2007-BP-26941NB

PATIENT
  Sex: Male
  Weight: 74 kg

DRUGS (7)
  1. SPIRIVA [Suspect]
     Indication: BRONCHITIS CHRONIC
     Route: 055
     Dates: start: 20061017, end: 20070404
  2. CODEINE PHOSPHATE [Concomitant]
     Indication: COUGH
     Route: 048
     Dates: start: 20061112
  3. LASIX [Concomitant]
     Indication: CARDIAC FAILURE CONGESTIVE
     Route: 048
     Dates: start: 20060613
  4. DILTIAZEM HCL [Concomitant]
     Indication: CARDIAC FAILURE CONGESTIVE
     Route: 048
     Dates: start: 20060613
  5. ASPIRIN [Concomitant]
     Indication: CARDIAC FAILURE CONGESTIVE
     Route: 048
     Dates: start: 20060613
  6. SEPAMIT [Concomitant]
     Indication: CARDIAC FAILURE CONGESTIVE
     Route: 048
     Dates: start: 20060613
  7. ITOROL [Concomitant]
     Indication: CARDIAC FAILURE CONGESTIVE
     Route: 048
     Dates: start: 20060613

REACTIONS (4)
  - CARDIAC FAILURE CONGESTIVE [None]
  - DIVERTICULITIS [None]
  - DYSPNOEA [None]
  - NEUROGENIC BLADDER [None]
